FAERS Safety Report 11822026 (Version 1)
Quarter: 2015Q4

REPORT INFORMATION
  Report Type: Spontaneous
  Country: US (occurrence: US)
  Receive Date: 20151210
  Receipt Date: 20151210
  Transmission Date: 20160305
  Serious: No
  Sender: FDA-Public Use
  Company Number: US-JNJFOC-20150307929

PATIENT
  Sex: Male

DRUGS (9)
  1. IMBRUVICA [Suspect]
     Active Substance: IBRUTINIB
     Indication: CHRONIC LYMPHOCYTIC LEUKAEMIA
     Route: 048
  2. IMBRUVICA [Suspect]
     Active Substance: IBRUTINIB
     Indication: CHRONIC LYMPHOCYTIC LEUKAEMIA
     Route: 048
     Dates: start: 20140627, end: 20150518
  3. BENICAR [Concomitant]
     Active Substance: OLMESARTAN MEDOXOMIL
  4. METOPROLOL [Concomitant]
     Active Substance: METOPROLOL
  5. PIOGLITAZONE. [Concomitant]
     Active Substance: PIOGLITAZONE
  6. INVOKANA [Concomitant]
     Active Substance: CANAGLIFLOZIN
  7. TRADJENTA [Concomitant]
     Active Substance: LINAGLIPTIN
  8. CRESTOR [Concomitant]
     Active Substance: ROSUVASTATIN CALCIUM
  9. FINASTERIDE. [Concomitant]
     Active Substance: FINASTERIDE

REACTIONS (5)
  - Insomnia [Unknown]
  - Decreased appetite [Recovering/Resolving]
  - Weight decreased [Recovering/Resolving]
  - Blood pressure increased [Recovering/Resolving]
  - Atrial fibrillation [Recovering/Resolving]
